FAERS Safety Report 13727180 (Version 3)
Quarter: 2017Q4

REPORT INFORMATION
  Report Type: Spontaneous
  Country: CN (occurrence: CN)
  Receive Date: 20170707
  Receipt Date: 20171027
  Transmission Date: 20180320
  Serious: Yes (Life-Threatening, Other)
  Sender: FDA-Public Use
  Company Number: CN-PFIZER INC-2017293622

PATIENT
  Age: 43 Year
  Sex: Female

DRUGS (3)
  1. EPIRUBICIN HCL [Suspect]
     Active Substance: EPIRUBICIN HYDROCHLORIDE
     Indication: PANCREATIC NEUROENDOCRINE TUMOUR
     Dosage: 80 MG ON DAY 1
     Route: 042
  2. IFOSFAMIDE. [Suspect]
     Active Substance: IFOSFAMIDE
     Indication: PANCREATIC NEUROENDOCRINE TUMOUR
     Dosage: 6 G ON DAYS 1 TO 4
  3. ENDOSTAR [Suspect]
     Active Substance: ENDOSTATIN
     Indication: PANCREATIC NEUROENDOCRINE TUMOUR
     Dosage: 15MG, EVERY DAY FROM DAY 1 TO 14

REACTIONS (2)
  - Bone marrow failure [Unknown]
  - Gastrointestinal disorder [Unknown]
